FAERS Safety Report 5763621-X (Version None)
Quarter: 2008Q2

REPORT INFORMATION
  Report Type: 
  Country: None (occurrence: None)
  Receive Date: 20080610
  Receipt Date: 20080602
  Transmission Date: 20081010
  Serious: Yes (Other)
  Sender: FDA-Public Use
  Company Number: US-WYE-H04358408

PATIENT
  Age: 16 Year
  Sex: Female

DRUGS (1)
  1. ADVIL MIGRAINE [Suspect]
     Indication: SUICIDE ATTEMPT
     Dosage: ^8 LIQUI-GELS^
     Route: 048

REACTIONS (2)
  - INTENTIONAL OVERDOSE [None]
  - SUICIDE ATTEMPT [None]
